FAERS Safety Report 17408112 (Version 1)
Quarter: 2020Q1

REPORT INFORMATION
  Report Type: Spontaneous
  Country: NL (occurrence: NL)
  Receive Date: 20200212
  Receipt Date: 20200212
  Transmission Date: 20200409
  Serious: Yes (Hospitalization)
  Sender: FDA-Public Use
  Company Number: PHHY2019NL215724

PATIENT

DRUGS (5)
  1. OXALIPLATIN. [Suspect]
     Active Substance: OXALIPLATIN
     Indication: COLORECTAL CANCER
     Dosage: 85 MG/M2 (DATE OF LAST DOSE: 29/JUL/2019, 08/OCT/2019)
     Route: 065
     Dates: start: 20190626
  2. IRINOTECAN HYDROCHLORIDE. [Suspect]
     Active Substance: IRINOTECAN HYDROCHLORIDE
     Indication: COLORECTAL CANCER
     Dosage: 165 MG/M2 (DATE OF LAST DOSE: 29/JUL/2019, 08/OCT/2019)
     Route: 065
     Dates: start: 20190626
  3. 5-FLUOROURACIL [Suspect]
     Active Substance: FLUOROURACIL
     Indication: COLORECTAL CANCER
     Dosage: 3200 MG/M2 (DATE OF LAST DOSE: 29/JUL/2019, 10/OCT/2019)
     Route: 065
     Dates: start: 20190626
  4. BEVACIZUMAB. [Suspect]
     Active Substance: BEVACIZUMAB
     Indication: COLORECTAL CANCER
     Dosage: 5 MG/KG, BIW (DATE OF LAST DOSE: 29/JUL/2019, 08/OCT/2019)
     Route: 042
     Dates: start: 20190626
  5. CALCIUM FOLINATE [Suspect]
     Active Substance: LEUCOVORIN CALCIUM
     Indication: COLORECTAL CANCER
     Dosage: 400 MG/M2 (DATE OF LAST DOSE: 29/JUL/2019, 08/OCT/2019 )
     Route: 065
     Dates: start: 20190626

REACTIONS (2)
  - Pyrexia [Recovered/Resolved]
  - Neutropenia [Recovered/Resolved]

NARRATIVE: CASE EVENT DATE: 20190708
